FAERS Safety Report 22203306 (Version 1)
Quarter: 2023Q2

REPORT INFORMATION
  Report Type: Spontaneous
  Country: US (occurrence: US)
  Receive Date: 20230412
  Receipt Date: 20230412
  Transmission Date: 20230722
  Serious: Yes (Hospitalization)
  Sender: FDA-Public Use
  Company Number: US-JNJFOC-20210902918

PATIENT
  Age: 30 Year
  Sex: Female

DRUGS (1)
  1. IMODIUM [Suspect]
     Active Substance: LOPERAMIDE HYDROCHLORIDE
     Indication: Product used for unknown indication
     Route: 048

REACTIONS (5)
  - Syncope [Unknown]
  - Electrocardiogram QT prolonged [Recovering/Resolving]
  - Overdose [Unknown]
  - Drug abuse [Unknown]
  - Withdrawal syndrome [Recovering/Resolving]
